FAERS Safety Report 7316373-6 (Version None)
Quarter: 2011Q1

REPORT INFORMATION
  Report Type: 
  Country: None (occurrence: None)
  Receive Date: 20110225
  Receipt Date: 20110225
  Transmission Date: 20110831
  Serious: Yes (Other)
  Sender: FDA-Public Use
  Company Number: ES-ABBOTT-11P-144-0707490-00

PATIENT
  Age: 41 Year
  Sex: Female

DRUGS (3)
  1. SULFATO FERROSO [Concomitant]
     Indication: PREGNANCY
     Route: 048
     Dates: start: 20100608
  2. KALETRA [Suspect]
     Indication: HIV INFECTION
     Route: 048
     Dates: start: 20100608
  3. FOLIC ACID [Concomitant]
     Indication: PREGNANCY
     Route: 048
     Dates: start: 20100608

REACTIONS (1)
  - STILLBIRTH [None]
